FAERS Safety Report 4310301-3 (Version None)
Quarter: 2004Q1

REPORT INFORMATION
  Report Type: 
  Country: None (occurrence: None)
  Receive Date: 20040301
  Receipt Date: 20040301
  Transmission Date: 20041129
  Serious: Yes (Hospitalization)
  Sender: FDA-Public Use
  Company Number: None

PATIENT
  Age: 44 Year
  Sex: Male

DRUGS (1)
  1. MORPHINE [Suspect]
     Indication: PAIN
     Dosage: INTRATRACHEAL
     Route: 039

REACTIONS (7)
  - DEVICE FAILURE [None]
  - LETHARGY [None]
  - MEDICATION ERROR [None]
  - NAUSEA [None]
  - SOMNOLENCE [None]
  - STUPOR [None]
  - VOMITING [None]
